FAERS Safety Report 7982200-7 (Version None)
Quarter: 2011Q4

REPORT INFORMATION
  Report Type: 
  Country: None (occurrence: None)
  Receive Date: 20111215
  Receipt Date: 20111209
  Transmission Date: 20120403
  Serious: No
  Sender: FDA-Public Use
  Company Number: US-B.I. PHARMACEUTICALS,INC./RIDGEFIELD-2011-BP-16398BP

PATIENT
  Sex: Female

DRUGS (9)
  1. CARVEDILOL [Concomitant]
  2. TERAZOSIN HCL [Concomitant]
  3. LEVOTHYROXINE SODIUM [Concomitant]
  4. LOSARTAN POTASSIUM [Concomitant]
  5. SERTRALINE HYDROCHLORIDE [Concomitant]
  6. SIMVASTATIN [Concomitant]
  7. PRADAXA [Suspect]
     Indication: CARDIAC ASSISTANCE DEVICE USER
     Dosage: 300 MG
  8. OMEPRAZOLE [Concomitant]
  9. NASONEX [Concomitant]

REACTIONS (1)
  - MALAISE [None]
